FAERS Safety Report 5729144-9 (Version None)
Quarter: 2008Q2

REPORT INFORMATION
  Report Type: 
  Country: None (occurrence: None)
  Receive Date: 20080506
  Receipt Date: 20080428
  Transmission Date: 20081010
  Serious: Yes (Hospitalization)
  Sender: FDA-Public Use
  Company Number: GB-ROCHE-557482

PATIENT
  Sex: Female
  Weight: 125 kg

DRUGS (7)
  1. ORLISTAT [Suspect]
     Indication: OBESITY
     Route: 048
     Dates: start: 20071203
  2. METFORMIN HCL [Concomitant]
     Dosage: DOSAGE REPORTED AS 850MG 3 TIMES
     Route: 048
  3. OMEPRAZOLE [Concomitant]
     Route: 048
  4. RAMIPRIL [Concomitant]
     Indication: HYPERTENSION
     Route: 048
  5. ATORVASTATIN [Concomitant]
     Dosage: DOSAGE REPORTED AS 10MG NOCTE
     Route: 048
  6. TRAMADOL HCL [Concomitant]
     Dosage: DOSAGE REPORTED AS 50MG 4 TIMES
     Route: 048
  7. GLICLAZIDE [Concomitant]
     Dosage: DOSAGE REPORTED AS 80MG 2 TIMES
     Route: 048

REACTIONS (2)
  - CHEST PAIN [None]
  - HERNIA PAIN [None]
